FAERS Safety Report 8318606-6 (Version None)
Quarter: 2012Q2

REPORT INFORMATION
  Report Type: 
  Country: None (occurrence: None)
  Receive Date: 20120427
  Receipt Date: 20090807
  Transmission Date: 20120825
  Serious: No
  Sender: FDA-Public Use
  Company Number: US-TEVA-2009009363

PATIENT
  Sex: Female
  Weight: 53.118 kg

DRUGS (5)
  1. MULTI-VITAMIN [Concomitant]
     Indication: VITAMIN SUPPLEMENTATION
     Route: 048
  2. BETASERON [Concomitant]
     Indication: MULTIPLE SCLEROSIS
     Dates: start: 20030101
  3. ZANAFLEX [Concomitant]
     Indication: MUSCLE SPASMS
     Route: 048
     Dates: start: 20080101
  4. NUVIGIL [Suspect]
     Indication: FATIGUE
     Dosage: 150 MILLIGRAM;
     Route: 048
     Dates: start: 20090804
  5. VITAMIN D [Concomitant]
     Indication: VITAMIN SUPPLEMENTATION
     Route: 048

REACTIONS (2)
  - DECREASED APPETITE [None]
  - NAUSEA [None]
